FAERS Safety Report 6214918-0 (Version None)
Quarter: 2009Q2

REPORT INFORMATION
  Report Type: 
  Country: None (occurrence: None)
  Receive Date: 20090604
  Receipt Date: 20090601
  Transmission Date: 20091009
  Serious: Yes (Disabling, Other)
  Sender: FDA-Public Use
  Company Number: US-ASTRAZENECA-2009UW13893

PATIENT
  Sex: Female

DRUGS (13)
  1. CRESTOR [Suspect]
     Indication: BLOOD CHOLESTEROL INCREASED
     Route: 048
     Dates: start: 20090518, end: 20090529
  2. ADVAIR HFA [Concomitant]
     Indication: ASTHMA
     Dosage: PRN
     Route: 055
  3. AMITRIPTLINE HYDROCHLORIDE TAB [Concomitant]
     Indication: DEPRESSION
     Route: 048
  4. BONIVA [Concomitant]
     Indication: OSTEOPOROSIS
     Dosage: EVERY THREE MONTHS
     Route: 048
  5. CLARINEX [Concomitant]
     Indication: HYPERSENSITIVITY
     Route: 048
  6. DIOVAN [Concomitant]
     Indication: HYPERTENSION
     Route: 048
  7. ENABLEX [Concomitant]
     Indication: BLADDER DISORDER
     Route: 048
  8. GLUCOPHAGE [Concomitant]
     Indication: DIABETES MELLITUS
     Route: 048
  9. LEXAPRO [Concomitant]
     Indication: ANXIETY
     Route: 048
  10. MEXALT MLT [Concomitant]
     Indication: MIGRAINE
     Dosage: PRN
     Route: 048
  11. NEXIUM [Concomitant]
     Indication: GASTROOESOPHAGEAL REFLUX DISEASE
     Route: 048
  12. SINGULAIR [Concomitant]
     Indication: HYPERSENSITIVITY
     Route: 048
  13. WELLBUTRIN SR [Concomitant]
     Indication: DEPRESSION
     Route: 048

REACTIONS (3)
  - MUSCLE ATROPHY [None]
  - MUSCLE INJURY [None]
  - MYALGIA [None]
